FAERS Safety Report 9006077 (Version 2)
Quarter: 2013Q1

REPORT INFORMATION
  Report Type: Report from Study
  Country: DE (occurrence: DE)
  Receive Date: 20130109
  Receipt Date: 20130222
  Transmission Date: 20140127
  Serious: Yes (Other)
  Sender: FDA-Public Use
  Company Number: PHHO2013DE000494

PATIENT
  Age: 72 Year
  Sex: Male
  Weight: 74 kg

DRUGS (5)
  1. AMN107 [Suspect]
     Indication: CHRONIC MYELOID LEUKAEMIA
     Dosage: 600 UNK, UNK
     Dates: start: 20111114
  2. ALLOPURINOL [Concomitant]
     Indication: HYPERURICAEMIA
     Dosage: 300 MG, UNK
     Dates: start: 20111114
  3. KALIUMCHLORID [Concomitant]
     Indication: HYPOKALAEMIA
     Dosage: 100 MG, UNK
     Dates: start: 20111114
  4. METOCLOPRAMID [Concomitant]
     Indication: PROPHYLAXIS AGAINST GASTROINTESTINAL ULCER
     Dosage: 500 MG, UNK
     Dates: start: 20111114
  5. OMEPRAZOL [Concomitant]
     Indication: PROPHYLAXIS AGAINST GASTROINTESTINAL ULCER
     Dosage: 20 MG, UNK
     Dates: start: 20111114

REACTIONS (1)
  - Non-Hodgkin^s lymphoma [Unknown]
